FAERS Safety Report 13353393 (Version 10)
Quarter: 2017Q3

REPORT INFORMATION
  Report Type: Spontaneous
  Country: US (occurrence: US)
  Receive Date: 20170321
  Receipt Date: 20170901
  Transmission Date: 20171127
  Serious: Yes (Other)
  Sender: FDA-Public Use
  Company Number: PHEH2017US008267

PATIENT
  Sex: Female
  Weight: 74.83 kg

DRUGS (2)
  1. ONDANSETRON [Suspect]
     Active Substance: ONDANSETRON
     Indication: VOMITING IN PREGNANCY
     Dosage: 04 MG, PRN
     Route: 065
     Dates: start: 20141218, end: 201501
  2. ZOFRAN [Suspect]
     Active Substance: ONDANSETRON HYDROCHLORIDE
     Indication: PRODUCT USED FOR UNKNOWN INDICATION
     Route: 048

REACTIONS (18)
  - Perinatal depression [Unknown]
  - Mental disorder [Unknown]
  - Diarrhoea [Unknown]
  - Microsomia [Unknown]
  - Breast tenderness [Unknown]
  - Back pain [Unknown]
  - Headache [Unknown]
  - Pollakiuria [Unknown]
  - Myalgia [Unknown]
  - Stillbirth [Unknown]
  - Maternal exposure during pregnancy [Unknown]
  - Injury [Unknown]
  - Emotional distress [Unknown]
  - Anaemia [Unknown]
  - Anxiety [Unknown]
  - Vision blurred [Unknown]
  - Cough [Unknown]
  - Product use issue [Unknown]
